FAERS Safety Report 10214415 (Version 1)
Quarter: 2014Q2

REPORT INFORMATION
  Report Type: Spontaneous
  Country: IT (occurrence: IT)
  Receive Date: 20140603
  Receipt Date: 20140603
  Transmission Date: 20141212
  Serious: Yes (Other)
  Sender: FDA-Public Use
  Company Number: IT-TEVA-484231ISR

PATIENT
  Age: 55 Year
  Sex: Male

DRUGS (4)
  1. OLANZAPINA TEVA [Suspect]
     Indication: PSYCHOTIC DISORDER
     Dosage: 25 MILLIGRAM DAILY;
     Route: 048
     Dates: start: 20130701
  2. OLANZAPINA MYLAN [Suspect]
     Indication: PSYCHOTIC DISORDER
     Dosage: 25 MILLIGRAM DAILY;
     Route: 048
     Dates: start: 20130201, end: 20130630
  3. CLONAZEPAM [Concomitant]
     Dosage: 1.5 MILLIGRAM DAILY;
     Route: 048
  4. BIPERIDENE CLORIDRATO [Concomitant]
     Dosage: 2 MILLIGRAM DAILY;
     Route: 048

REACTIONS (4)
  - Drug ineffective [Recovered/Resolved]
  - Conduct disorder [Recovered/Resolved]
  - Aggression [Recovered/Resolved]
  - Product substitution issue [Recovered/Resolved]
